FAERS Safety Report 5341347-4 (Version None)
Quarter: 2007Q2

REPORT INFORMATION
  Report Type: 
  Country: None (occurrence: None)
  Receive Date: 20070530
  Receipt Date: 20070522
  Transmission Date: 20071010
  Serious: Yes (Death, Hospitalization)
  Sender: FDA-Public Use
  Company Number: 163-21880-06090414

PATIENT
  Age: 83 Year
  Sex: Female
  Weight: 58.6 kg

DRUGS (5)
  1. REVLIMID [Suspect]
     Indication: MULTIPLE MYELOMA
     Dosage: 25 MG, DAILY, DAYS 1-21 EVERY 28 DAYS, ORAL
     Route: 048
     Dates: start: 20060424, end: 20060910
  2. DEXAMETHASONE TAB [Suspect]
     Indication: MULTIPLE MYELOMA
     Dosage: 40 MG, DAILY, DAYS 1-4, 9-12, 17-20 EVERY 28D, ORAL
     Route: 048
     Dates: start: 20060424
  3. DIFLUCAN [Concomitant]
  4. MAGNESIUM OXIDE (MAGNESIUM OXIDE) [Concomitant]
  5. NORVASC [Concomitant]

REACTIONS (17)
  - ATRIAL FIBRILLATION [None]
  - CANDIDIASIS [None]
  - CARDIAC ARREST [None]
  - CHEST PAIN [None]
  - EJECTION FRACTION DECREASED [None]
  - FAILURE TO THRIVE [None]
  - GENERAL PHYSICAL HEALTH DETERIORATION [None]
  - HYPERGLYCAEMIA [None]
  - HYPOCALCAEMIA [None]
  - HYPONATRAEMIA [None]
  - LEFT VENTRICULAR DYSFUNCTION [None]
  - MUSCULAR WEAKNESS [None]
  - NODAL ARRHYTHMIA [None]
  - OEDEMA PERIPHERAL [None]
  - POLLAKIURIA [None]
  - THIRST [None]
  - URINE OUTPUT DECREASED [None]
